FAERS Safety Report 14620522 (Version 1)
Quarter: 2018Q1

REPORT INFORMATION
  Report Type: Report from Study
  Country: US (occurrence: US)
  Receive Date: 20180309
  Receipt Date: 20180309
  Transmission Date: 20180509
  Serious: Yes (Other)
  Sender: FDA-Public Use
  Company Number: US-SHIRE-US201808146

PATIENT
  Age: 73 Year
  Sex: Female

DRUGS (2)
  1. GATTEX [Suspect]
     Active Substance: TEDUGLUTIDE\WATER
     Indication: SHORT-BOWEL SYNDROME
     Dosage: 2.5 MG, 1X/DAY:QD
     Route: 058
     Dates: start: 20180129, end: 20180219
  2. GATTEX [Suspect]
     Active Substance: TEDUGLUTIDE\WATER
     Indication: MALABSORPTION

REACTIONS (1)
  - Abdominal tenderness [Unknown]

NARRATIVE: CASE EVENT DATE: 20180220
